FAERS Safety Report 8366014-4 (Version None)
Quarter: 2012Q2

REPORT INFORMATION
  Report Type: 
  Country: None (occurrence: None)
  Receive Date: 20120517
  Receipt Date: 20120515
  Transmission Date: 20120825
  Serious: No
  Sender: FDA-Public Use
  Company Number: US-PFIZER INC-2012118155

PATIENT
  Sex: Male

DRUGS (1)
  1. XALKORI [Suspect]
     Indication: ANAPLASTIC ASTROCYTOMA
     Dosage: 250 UNK, 2X/DAY

REACTIONS (2)
  - DISEASE PROGRESSION [None]
  - ANAPLASTIC ASTROCYTOMA [None]
